FAERS Safety Report 6333897-9 (Version None)
Quarter: 2009Q3

REPORT INFORMATION
  Report Type: 
  Country: None (occurrence: None)
  Receive Date: 20090829
  Receipt Date: 20090729
  Transmission Date: 20100115
  Serious: No
  Sender: FDA-Public Use
  Company Number: US-ABBOTT-09P-163-0584399-00

PATIENT
  Sex: Female
  Weight: 74.91 kg

DRUGS (4)
  1. SIMCOR [Suspect]
     Indication: HIGH DENSITY LIPOPROTEIN ABNORMAL
     Dosage: 500/20 MG
     Dates: start: 20090629
  2. PROCRIT [Concomitant]
     Indication: DRUG USE FOR UNKNOWN INDICATION
  3. PLAVIX [Concomitant]
     Indication: DRUG USE FOR UNKNOWN INDICATION
     Route: 048
  4. 3 ANTIHYTENSIVE MEDICATIONS [Concomitant]
     Indication: BLOOD PRESSURE INCREASED

REACTIONS (1)
  - FEELING HOT [None]
